FAERS Safety Report 17035462 (Version 1)
Quarter: 2019Q4

REPORT INFORMATION
  Report Type: Spontaneous
  Country: GB (occurrence: GB)
  Receive Date: 20191115
  Receipt Date: 20191115
  Transmission Date: 20200122
  Serious: Yes (Life-Threatening)
  Sender: FDA-Public Use
  Company Number: GB-TEVA-2019-GB-1137686

PATIENT
  Age: 57 Year
  Sex: Male
  Weight: 63 kg

DRUGS (20)
  1. SANDOCAL [Concomitant]
     Dosage: 2 DOSAGE FORMS, DAILY
     Dates: start: 20171211, end: 20171226
  2. RAMIPRIL. [Concomitant]
     Active Substance: RAMIPRIL
     Dosage: 2 DOSAGE FORMS, DAILY
     Dates: start: 20170817
  3. BUMETANIDE. [Concomitant]
     Active Substance: BUMETANIDE
     Dosage: STOPPED,2 DOSAGE FORMS, DAILY
     Dates: start: 20170817
  4. CO-MAGALDROX [Concomitant]
     Dosage: 80 ML DAILY
     Dates: start: 20171206, end: 20171216
  5. FLUTIFORM [Concomitant]
     Active Substance: FLUTICASONE PROPIONATE\FORMOTEROL FUMARATE
     Dosage: 4 DOSAGE FORMS, DAILY
     Route: 055
     Dates: start: 20170817
  6. LOPERAMIDE [Concomitant]
     Active Substance: LOPERAMIDE
     Dosage: 3 DOSAGE FORMS, DAILY
     Dates: start: 20170817
  7. VENTOLIN [Concomitant]
     Active Substance: ALBUTEROL SULFATE
     Dosage: 2 DOSAGE FORMS
     Route: 055
     Dates: start: 20170817
  8. EPLERENONE. [Concomitant]
     Active Substance: EPLERENONE
     Dosage: 1 DOSAGE FORMS, DAILY
     Dates: start: 20170817
  9. ZOPICLONE [Concomitant]
     Active Substance: ZOPICLONE
     Dosage: 1 DOSAGE FORMS DAILY; AT NIGHT.
     Dates: start: 20170817
  10. ACLIDINIUM [Concomitant]
     Active Substance: ACLIDINIUM BROMIDE
     Dosage: 2 DOSAGE FORMS, DAILY
     Route: 055
     Dates: start: 20170817
  11. PANTOPRAZOLE [Suspect]
     Active Substance: PANTOPRAZOLE
     Dosage: 20 MG
     Dates: start: 201609
  12. NEBIVOLOL. [Concomitant]
     Active Substance: NEBIVOLOL
     Dosage: 1 DOSAGE FORMS, DAILY
     Dates: start: 20170817
  13. ATORVASTATIN [Concomitant]
     Active Substance: ATORVASTATIN
     Dosage: 1 DOSAGE FORMS, DAILY
     Dates: start: 20170817
  14. PANTOPRAZOLE [Suspect]
     Active Substance: PANTOPRAZOLE
     Indication: GASTRITIS
     Dosage: 40 MG
     Dates: start: 201710
  15. MONTELUKAST [Concomitant]
     Active Substance: MONTELUKAST SODIUM
     Dosage: 1 DOSAGE FORMS DAILY; AT NIGHT.
     Dates: start: 20170817
  16. HYOSCINE BUTYLBROMIDE [Concomitant]
     Active Substance: BUTYLSCOPOLAMINE BROMIDE
     Dosage: TAKE ONE TABLET THREE TIMES A DAY, INCREASING T...
     Dates: start: 20171121
  17. NIFEDIPINE. [Concomitant]
     Active Substance: NIFEDIPINE
     Dosage: 3 DOSAGE FORMS, DAILY
     Dates: start: 20170817
  18. LORATADINE. [Concomitant]
     Active Substance: LORATADINE
     Dosage: 1 DOSAGE FORMS, DAILY
     Dates: start: 20170817
  19. CLOPIDOGREL [Concomitant]
     Active Substance: CLOPIDOGREL BISULFATE
     Dosage: 1 DOSAGE FORMS, DAILY
     Dates: start: 20170817
  20. RANITIDINE. [Concomitant]
     Active Substance: RANITIDINE
     Dosage: 2 DOSAGE FORMS, DAILY
     Dates: start: 20171207

REACTIONS (3)
  - Hypocalcaemia [Recovered/Resolved]
  - Paraesthesia [Unknown]
  - Hypomagnesaemia [Recovered/Resolved]

NARRATIVE: CASE EVENT DATE: 201710
